FAERS Safety Report 6571189-3 (Version None)
Quarter: 2010Q1

REPORT INFORMATION
  Report Type: 
  Country: None (occurrence: None)
  Receive Date: 20100129
  Receipt Date: 20100113
  Transmission Date: 20100710
  Serious: Yes (Hospitalization)
  Sender: FDA-Public Use
  Company Number: 2009AC000211

PATIENT
  Age: 51 Year
  Sex: Male

DRUGS (43)
  1. DIGOXIN [Suspect]
     Dosage: 0.125 MG;QD;PO 0.25 MG;UNKNOWN;PO .125 MG;QD;UNKNOWN
     Route: 048
     Dates: start: 20050401
  2. DIGOXIN [Suspect]
     Dosage: 0.125 MG;QD;PO 0.25 MG;UNKNOWN;PO .125 MG;QD;UNKNOWN
     Route: 048
     Dates: start: 20080501
  3. LASIX [Concomitant]
  4. ASPIRIN [Concomitant]
  5. LORATADINE [Concomitant]
  6. MINOCIN [Concomitant]
  7. COREG [Concomitant]
  8. VITAMIN D [Concomitant]
  9. TRICOR [Concomitant]
  10. EPLERFENONE [Concomitant]
  11. LYRICA [Concomitant]
  12. DIOVAN [Concomitant]
  13. PLAVIX [Concomitant]
  14. PRAVASTATIN [Concomitant]
  15. HYDROXYZINE [Concomitant]
  16. CALCIUM [Concomitant]
  17. ZELNORM [Concomitant]
  18. COREG [Concomitant]
  19. PREVACID [Concomitant]
  20. INSPRA [Concomitant]
  21. LIPITOR [Concomitant]
  22. CLOTRIMAZOLEBETHAMETH CREAM [Concomitant]
  23. MINOCYCLINE HCL [Concomitant]
  24. PRAVASTATIN [Concomitant]
  25. LEVAQUIN [Concomitant]
  26. CLARITHROMYCIN [Concomitant]
  27. NITROGLYCERIN [Concomitant]
  28. KETOROLAC TROMETHAMINE [Concomitant]
  29. TRICOR [Concomitant]
  30. ACARBOSE [Concomitant]
  31. CIPRO [Concomitant]
  32. CYCLOBENZAPRINE [Concomitant]
  33. TAMIFLU [Concomitant]
  34. FUROSEMIDE [Concomitant]
  35. CLOTRIMAZOLE [Concomitant]
  36. INSPRA [Concomitant]
  37. ALTACE [Concomitant]
  38. HYDRALAZINE [Concomitant]
  39. ZOLNORM [Concomitant]
  40. SINGULAIR [Concomitant]
  41. TOPROL-XL [Concomitant]
  42. VISTARIL [Concomitant]
  43. VITAMIN B COMPLEX CAP [Concomitant]

REACTIONS (28)
  - ANHEDONIA [None]
  - ANXIETY [None]
  - ASTHENIA [None]
  - AUTONOMIC NEUROPATHY [None]
  - BASAL CELL CARCINOMA [None]
  - BLOOD CHOLESTEROL INCREASED [None]
  - BLOOD PRESSURE DECREASED [None]
  - CARDIAC FAILURE CONGESTIVE [None]
  - CARDIOACTIVE DRUG LEVEL INCREASED [None]
  - CAROTIDYNIA [None]
  - CHEST PAIN [None]
  - CORONARY ARTERY DISEASE [None]
  - DERMATITIS [None]
  - DIZZINESS [None]
  - DYSPHAGIA [None]
  - DYSPNOEA [None]
  - ECONOMIC PROBLEM [None]
  - FATIGUE [None]
  - GLUCOSE TOLERANCE IMPAIRED [None]
  - HYPERLIPIDAEMIA [None]
  - HYPERTENSION [None]
  - MULTIPLE INJURIES [None]
  - NEUROPATHY PERIPHERAL [None]
  - PAIN [None]
  - RASH MACULAR [None]
  - RESPIRATORY FAILURE [None]
  - SLEEP APNOEA SYNDROME [None]
  - SNORING [None]
